FAERS Safety Report 7900956-6 (Version None)
Quarter: 2011Q4

REPORT INFORMATION
  Report Type: 
  Country: None (occurrence: None)
  Receive Date: 20111108
  Receipt Date: 20111028
  Transmission Date: 20120403
  Serious: Yes (Hospitalization)
  Sender: FDA-Public Use
  Company Number: US-BAYER-2011-106938

PATIENT
  Sex: Female

DRUGS (3)
  1. IMITREX [Concomitant]
     Indication: MIGRAINE
     Dosage: UNK
     Dates: start: 20010101, end: 20030101
  2. YASMIN [Suspect]
     Dosage: UNK
     Dates: start: 20000101, end: 20070101
  3. YAZ [Suspect]
     Dosage: UNK
     Dates: start: 20000101, end: 20070101

REACTIONS (1)
  - GASTRIC DISORDER [None]
